FAERS Safety Report 23665104 (Version 1)
Quarter: 2024Q1

REPORT INFORMATION
  Report Type: Spontaneous
  Country: US (occurrence: US)
  Receive Date: 20240322
  Receipt Date: 20240322
  Transmission Date: 20240410
  Serious: No
  Sender: FDA-Public Use
  Company Number: US-JNJFOC-20240363685

PATIENT
  Age: 71 Year
  Sex: Male

DRUGS (6)
  1. ERLEADA [Suspect]
     Active Substance: APALUTAMIDE
     Indication: Hormone-dependent prostate cancer
     Route: 048
     Dates: start: 20240228, end: 20240303
  2. FARESTON [Concomitant]
     Active Substance: TOREMIFENE CITRATE
  3. LOSARTAN [Concomitant]
     Active Substance: LOSARTAN
  4. METFORMIN [Concomitant]
     Active Substance: METFORMIN HYDROCHLORIDE
  5. NOVOLOG [Concomitant]
     Active Substance: INSULIN ASPART
  6. TAMSULOSIN [Concomitant]
     Active Substance: TAMSULOSIN

REACTIONS (1)
  - Peripheral swelling [Recovered/Resolved]

NARRATIVE: CASE EVENT DATE: 20240303
